FAERS Safety Report 23741256 (Version 1)
Quarter: 2024Q2

REPORT INFORMATION
  Report Type: Spontaneous
  Country: NL (occurrence: NL)
  Receive Date: 20240415
  Receipt Date: 20240415
  Transmission Date: 20240715
  Serious: Yes (Life-Threatening, Hospitalization)
  Sender: FDA-Public Use
  Company Number: None

PATIENT
  Age: 42 Year
  Sex: Female
  Weight: 78 kg

DRUGS (1)
  1. ETHINYL ESTRADIOL\LEVONORGESTREL [Suspect]
     Active Substance: ETHINYL ESTRADIOL\LEVONORGESTREL
     Indication: Contraception
     Dosage: 1 PIECE ONCE A DAY. 3 WEEKS THEN A STOP WEEK: 20/100UG / BRAND NAME NOT SPECIFIED
     Route: 065
     Dates: start: 20230301, end: 20240313

REACTIONS (1)
  - Cerebral infarction [Recovering/Resolving]
